APPROVED DRUG PRODUCT: EPITOL
Active Ingredient: CARBAMAZEPINE
Strength: 100MG
Dosage Form/Route: TABLET, CHEWABLE;ORAL
Application: A073524 | Product #001 | TE Code: AB
Applicant: TEVA PHARMACEUTICALS USA INC
Approved: Jul 29, 1992 | RLD: No | RS: No | Type: RX